FAERS Safety Report 8495234-3 (Version None)
Quarter: 2012Q3

REPORT INFORMATION
  Report Type: 
  Country: None (occurrence: None)
  Receive Date: 20120709
  Receipt Date: 20120628
  Transmission Date: 20120928
  Serious: Yes (Death, Hospitalization)
  Sender: FDA-Public Use
  Company Number: CA-CELGENEUS-028-C5013-12063182

PATIENT
  Sex: Male
  Weight: 74.8 kg

DRUGS (22)
  1. PIPERACILLIN AND TAZOBACTAM [Concomitant]
     Indication: INFECTION
     Dosage: 2.25 GRAM
     Route: 041
     Dates: start: 20120619
  2. NYSTATIN [Concomitant]
     Dosage: 50,000 UNITS
     Route: 048
     Dates: start: 20120620
  3. LEVAQUIN [Concomitant]
     Indication: INFECTION
     Dosage: 500 MILLIGRAM
     Route: 048
     Dates: start: 20120524, end: 20120530
  4. LENALIDOMIDE [Suspect]
     Route: 048
     Dates: start: 20120531, end: 20120620
  5. ALLOPURINOL [Concomitant]
     Dosage: 300 MILLIGRAM
     Route: 048
     Dates: start: 20120525, end: 20120619
  6. LEVAQUIN [Concomitant]
     Dosage: 500 MILLIGRAM
     Route: 048
     Dates: start: 20120620
  7. RASBURICASE [Concomitant]
     Route: 041
     Dates: start: 20120621
  8. PANTOPRAZOLE [Concomitant]
     Dosage: 40 MILLIGRAM
     Route: 041
     Dates: start: 20120626
  9. NEUPOGEN [Concomitant]
     Indication: DRUG THERAPY
     Dosage: 300 MICROGRAM
     Route: 058
     Dates: start: 20120529, end: 20120531
  10. NEUPOGEN [Concomitant]
     Dosage: 300 MICROGRAM
     Route: 058
     Dates: start: 20120602, end: 20120619
  11. AMPHOJEL [Concomitant]
     Route: 048
  12. IBUPROFEN (ADVIL) [Concomitant]
     Route: 048
     Dates: start: 20100101
  13. ZOFRAN [Concomitant]
     Indication: NAUSEA
     Dosage: 8 MILLIGRAM
     Route: 048
     Dates: start: 20120615
  14. VITAMIN D [Concomitant]
     Indication: ROUTINE HEALTH MAINTENANCE
     Dosage: 1000 IU (INTERNATIONAL UNIT)
     Route: 048
     Dates: start: 20100101
  15. ALLOPURINOL [Concomitant]
     Dosage: 100 MILLIGRAM
     Route: 048
     Dates: start: 20120620
  16. ASPIRIN [Concomitant]
     Indication: PROPHYLAXIS
     Dosage: 81 MILLIGRAM
     Route: 048
     Dates: start: 20120525
  17. PAMIDRONATE DISODIUM [Concomitant]
     Dosage: 90 MILLIGRAM
     Route: 041
     Dates: start: 20120604, end: 20120604
  18. MULTI-VITAMINS [Concomitant]
     Indication: ROUTINE HEALTH MAINTENANCE
     Dosage: 1 TABLET
     Route: 048
     Dates: start: 20100101
  19. METHYLPREDNISOLONE ACETATE [Concomitant]
     Dosage: 80 MILLIGRAM
     Route: 041
     Dates: start: 20120620
  20. NEUPOGEN [Concomitant]
     Indication: PROPHYLAXIS
     Dosage: 480 MICROGRAM
     Route: 065
     Dates: start: 20120620, end: 20120620
  21. EXTRA STRENGTH TYLENOL [Concomitant]
     Indication: BONE PAIN
     Dosage: 500
     Route: 048
     Dates: start: 20120530
  22. SELENIUM [Concomitant]
     Dosage: 200 MICROGRAM
     Route: 048
     Dates: start: 20120625

REACTIONS (2)
  - INFECTION [None]
  - RENAL FAILURE [None]
